FAERS Safety Report 22954161 (Version 4)
Quarter: 2023Q4

REPORT INFORMATION
  Report Type: Report from Study
  Country: US (occurrence: US)
  Receive Date: 20230918
  Receipt Date: 20231116
  Transmission Date: 20240110
  Serious: Yes (Death)
  Sender: FDA-Public Use
  Company Number: US-BAUSCH-BL-2023-013878

PATIENT
  Age: 66 Year
  Sex: Female
  Weight: 99.88 kg

DRUGS (1)
  1. XIFAXAN [Suspect]
     Active Substance: RIFAXIMIN
     Indication: Hepatic cirrhosis
     Route: 048

REACTIONS (4)
  - Hepatic cirrhosis [Fatal]
  - Disease complication [Fatal]
  - Renal failure [Fatal]
  - Ill-defined disorder [Fatal]
